FAERS Safety Report 20847581 (Version 4)
Quarter: 2022Q3

REPORT INFORMATION
  Report Type: Spontaneous
  Country: FR (occurrence: FR)
  Receive Date: 20220519
  Receipt Date: 20220705
  Transmission Date: 20221027
  Serious: Yes (Other)
  Sender: FDA-Public Use
  Company Number: None

PATIENT
  Age: 35 Year
  Sex: Male
  Weight: 75 kg

DRUGS (2)
  1. BETAMETHASONE DIPROPIONATE [Suspect]
     Active Substance: BETAMETHASONE DIPROPIONATE
     Indication: Seborrhoeic dermatitis
     Dosage: INTAKE OF DIPROSALIC FOR 4 MONTHS 1/DAY
     Route: 061
     Dates: start: 20210114, end: 20210630
  2. BETAMETHASONE DIPROPIONATE\SALICYLIC ACID [Suspect]
     Active Substance: BETAMETHASONE DIPROPIONATE\SALICYLIC ACID
     Indication: Seborrhoeic dermatitis
     Dosage: 1 DOSAGE FORM (DF), QD, CREAM
     Route: 061
     Dates: start: 20210114, end: 20210630

REACTIONS (1)
  - Rosacea [Not Recovered/Not Resolved]

NARRATIVE: CASE EVENT DATE: 20210118
